APPROVED DRUG PRODUCT: POTASSIUM CHLORIDE
Active Ingredient: POTASSIUM CHLORIDE
Strength: 20MEQ
Dosage Form/Route: TABLET, EXTENDED RELEASE;ORAL
Application: A216321 | Product #003 | TE Code: AB1
Applicant: RUBICON RESEARCH LTD
Approved: Jun 16, 2023 | RLD: No | RS: No | Type: RX